FAERS Safety Report 5893386-2 (Version None)
Quarter: 2008Q3

REPORT INFORMATION
  Report Type: 
  Country: None (occurrence: None)
  Receive Date: 20080923
  Receipt Date: 20080826
  Transmission Date: 20090109
  Serious: Yes (Death)
  Sender: FDA-Public Use
  Company Number: TR-MERCK-0808TUR00002

PATIENT
  Age: 55 Year
  Sex: Female

DRUGS (8)
  1. PRIMAXIN [Suspect]
     Indication: ACINETOBACTER INFECTION
     Route: 041
  2. PRIMAXIN [Suspect]
     Indication: CANDIDIASIS
     Route: 041
  3. CEFAZOLIN SODIUM [Concomitant]
     Route: 065
  4. FLUCONAZOLE [Concomitant]
     Route: 048
  5. SULTAMICILLIN [Concomitant]
     Route: 065
  6. PREDNISOLONE [Concomitant]
     Route: 065
  7. LEVOTHYROXINE SODIUM [Concomitant]
     Route: 065
  8. INSULIN [Concomitant]
     Indication: DIABETES MELLITUS
     Route: 065

REACTIONS (1)
  - FUNGAEMIA [None]
